FAERS Safety Report 9432716 (Version 2)
Quarter: 2013Q3

REPORT INFORMATION
  Report Type: Spontaneous
  Country: IT (occurrence: IT)
  Receive Date: 20130731
  Receipt Date: 20130805
  Transmission Date: 20140515
  Serious: Yes (Hospitalization)
  Sender: FDA-Public Use
  Company Number: IT-TEVA-420500ISR

PATIENT
  Age: 55 Year
  Sex: Female

DRUGS (2)
  1. PACLITAXEL TEVA [Suspect]
     Indication: BREAST CANCER
     Dosage: 170 MILLIGRAM DAILY; 170 MG CYCLICAL; CONCENTRATE FOR SOLUTION FOR INFUSION
     Route: 041
     Dates: start: 20130628, end: 20130719
  2. AREDIA [Concomitant]

REACTIONS (5)
  - Hypertension [Recovered/Resolved]
  - Throat tightness [Recovered/Resolved]
  - Retching [Recovered/Resolved]
  - Rash [Recovered/Resolved]
  - Cough [Recovered/Resolved]
